FAERS Safety Report 19695254 (Version 1)
Quarter: 2021Q3

REPORT INFORMATION
  Report Type: Spontaneous
  Country: DE (occurrence: DE)
  Receive Date: 20210813
  Receipt Date: 20210813
  Transmission Date: 20211014
  Serious: Yes (Hospitalization, Other)
  Sender: FDA-Public Use
  Company Number: NVSC2021DE179455

PATIENT
  Age: 53 Year
  Sex: Male

DRUGS (2)
  1. IBUPROFEN. [Suspect]
     Active Substance: IBUPROFEN
     Indication: ARTHRALGIA
     Dosage: UNK UNK, PRN (BEDARF)
     Route: 065
     Dates: start: 202012, end: 202101
  2. SIMVASTATIN;SITAGLIPTIN [Concomitant]
     Indication: PRODUCT USED FOR UNKNOWN INDICATION
     Dosage: 1 DF, QD (10 MG, 0?0?1?0)
     Route: 065

REACTIONS (4)
  - Pancreatitis acute [Unknown]
  - Abdominal pain [Unknown]
  - Loss of consciousness [Unknown]
  - Vomiting [Unknown]
